FAERS Safety Report 10569946 (Version 1)
Quarter: 2014Q4

REPORT INFORMATION
  Report Type: Spontaneous
  Country: US (occurrence: None)
  Receive Date: 20141105
  Receipt Date: 20141105
  Transmission Date: 20150529
  Serious: No
  Sender: FDA-Public Use
  Company Number: BB14-332-AE

PATIENT
  Age: 69 Year
  Sex: Male

DRUGS (8)
  1. ALLOPURINOL. [Concomitant]
     Active Substance: ALLOPURINOL
  2. ATENOLOL. [Concomitant]
     Active Substance: ATENOLOL
  3. ENALAPRIL [Concomitant]
     Active Substance: ENALAPRIL
  4. PADDOL - CICLOTIROX (SHAMPOO) [Concomitant]
  5. VITAMIN D3 [Concomitant]
     Active Substance: CHOLECALCIFEROL
  6. FLUOCINOLONE ACETONIDE. [Suspect]
     Active Substance: FLUOCINOLONE ACETONIDE
     Indication: ECZEMA
     Dosage: 1 APPL. 3 TIMES WEEKLY
     Dates: start: 20140303, end: 20140821
  7. FLUOCINOLONE ACETONIDE. [Suspect]
     Active Substance: FLUOCINOLONE ACETONIDE
     Indication: DANDRUFF
     Dosage: 1 APPL. 3 TIMES WEEKLY
     Dates: start: 20140303, end: 20140821
  8. BABY ASPIRIN [Concomitant]
     Active Substance: ASPIRIN

REACTIONS (1)
  - Dizziness [None]

NARRATIVE: CASE EVENT DATE: 20140821
